FAERS Safety Report 4791192-3 (Version None)
Quarter: 2005Q4

REPORT INFORMATION
  Report Type: 
  Country: None (occurrence: None)
  Receive Date: 20051005
  Receipt Date: 20050913
  Transmission Date: 20060501
  Serious: Yes (Death)
  Sender: FDA-Public Use
  Company Number: 2005RR-00764

PATIENT
  Age: 91 Year
  Sex: Female

DRUGS (2)
  1. ASPIRIN [Suspect]
     Indication: MYOCARDIAL INFARCTION
     Dosage: 75 MG, QD, ORAL
     Route: 048
     Dates: start: 20050813
  2. CLOPIDOGREL BISULFATE [Suspect]
     Indication: MYOCARDIAL INFARCTION
     Dosage: 75 MG, QD, ORAL
     Route: 048
     Dates: start: 20050817

REACTIONS (1)
  - GASTROINTESTINAL HAEMORRHAGE [None]
